FAERS Safety Report 23451697 (Version 1)
Quarter: 2024Q1

REPORT INFORMATION
  Report Type: Spontaneous
  Country: US (occurrence: US)
  Receive Date: 20240129
  Receipt Date: 20240129
  Transmission Date: 20240409
  Serious: No
  Sender: FDA-Public Use
  Company Number: US-SA-SAC20240118000491

PATIENT
  Age: 4 Year
  Sex: Male
  Weight: 13.97 kg

DRUGS (1)
  1. DUPIXENT [Suspect]
     Active Substance: DUPILUMAB
     Indication: Dermatitis atopic
     Dosage: 300MG; Q 2 WEEKS
     Route: 058

REACTIONS (1)
  - Incorrect dose administered [Unknown]
